FAERS Safety Report 5110102-2 (Version None)
Quarter: 2006Q3

REPORT INFORMATION
  Report Type: 
  Country: None (occurrence: None)
  Receive Date: 20060918
  Receipt Date: 20060907
  Transmission Date: 20061208
  Serious: Yes (Hospitalization)
  Sender: FDA-Public Use
  Company Number: B0437273A

PATIENT
  Age: 42 Year
  Sex: Male

DRUGS (5)
  1. RETROVIR [Suspect]
     Indication: HIV INFECTION
  2. EPIVIR [Suspect]
     Indication: HIV INFECTION
  3. TRIZIVIR [Suspect]
     Indication: HIV INFECTION
  4. INDINIVIR SULFATE [Suspect]
     Indication: HIV INFECTION
  5. LOPINAVIR + RETONAVIR [Concomitant]

REACTIONS (5)
  - ASPARTATE AMINOTRANSFERASE INCREASED [None]
  - FATIGUE [None]
  - LIPODYSTROPHY ACQUIRED [None]
  - MENINGITIS ASEPTIC [None]
  - ORAL CANDIDIASIS [None]
